FAERS Safety Report 13397683 (Version 2)
Quarter: 2017Q2

REPORT INFORMATION
  Report Type: Spontaneous
  Country: FR (occurrence: FR)
  Receive Date: 20170403
  Receipt Date: 20170407
  Transmission Date: 20170830
  Serious: Yes (Hospitalization)
  Sender: FDA-Public Use
  Company Number: FR-SA-2017SA051728

PATIENT
  Age: 57 Year
  Sex: Female

DRUGS (17)
  1. OFLOCET [Suspect]
     Active Substance: OFLOXACIN
     Indication: URINARY TRACT INFECTION
     Route: 048
     Dates: start: 20170213, end: 20170218
  2. ACETYLSALICYLIC ACID [Suspect]
     Active Substance: ASPIRIN
     Route: 042
     Dates: start: 20170220, end: 20170220
  3. INNOHEP [Suspect]
     Active Substance: TINZAPARIN SODIUM
     Indication: PULMONARY EMBOLISM
     Route: 058
     Dates: start: 20170219
  4. PHLOROGLUCINOL [Suspect]
     Active Substance: PHLOROGLUCINOL
     Indication: PAIN
     Route: 042
     Dates: start: 20170220, end: 20170222
  5. ATARAX [Concomitant]
     Active Substance: HYDROXYZINE HYDROCHLORIDE
     Dates: start: 20170213, end: 20170218
  6. ONDANSETRON [Suspect]
     Active Substance: ONDANSETRON
     Indication: VOMITING
     Route: 042
     Dates: start: 20170219, end: 20170221
  7. KENZEN [Concomitant]
     Active Substance: CANDESARTAN
     Dates: start: 20170213, end: 20170218
  8. METOCLOPRAMIDE. [Suspect]
     Active Substance: METOCLOPRAMIDE
     Indication: VOMITING
     Route: 042
     Dates: start: 20170219, end: 20170221
  9. PAROXETINE. [Suspect]
     Active Substance: PAROXETINE
     Route: 048
     Dates: start: 20170221, end: 20170221
  10. INEXIUM [Concomitant]
     Active Substance: ESOMEPRAZOLE
     Dates: start: 20170213, end: 20170218
  11. ALPRAZOLAM. [Suspect]
     Active Substance: ALPRAZOLAM
     Indication: ANXIETY
     Route: 048
     Dates: start: 20170219, end: 20170224
  12. PLAVIX [Suspect]
     Active Substance: CLOPIDOGREL BISULFATE
     Route: 048
     Dates: start: 20170220, end: 20170220
  13. TERCIAN [Suspect]
     Active Substance: CYAMEMAZINE
     Indication: ANXIETY
     Route: 048
     Dates: start: 20170221, end: 20170221
  14. TANGANIL [Suspect]
     Active Substance: ACETYLLEUCINE
     Indication: VERTIGO
     Route: 042
     Dates: start: 20170220, end: 20170220
  15. DEBRIDAT [Suspect]
     Active Substance: TRIMEBUTINE MALEATE
     Indication: PAIN
     Route: 042
     Dates: start: 20170221, end: 20170221
  16. LIPANTHYL [Concomitant]
     Active Substance: FENOFIBRATE
     Dates: start: 20170213, end: 20170218
  17. TEMERIT [Concomitant]
     Active Substance: NEBIVOLOL
     Dates: start: 20170213, end: 20170218

REACTIONS (1)
  - Generalised tonic-clonic seizure [Recovered/Resolved]

NARRATIVE: CASE EVENT DATE: 20170221
